FAERS Safety Report 7685590-8 (Version None)
Quarter: 2011Q3

REPORT INFORMATION
  Report Type: 
  Country: None (occurrence: None)
  Receive Date: 20110816
  Receipt Date: 20110811
  Transmission Date: 20111222
  Serious: Yes (Life-Threatening, Hospitalization, Other)
  Sender: FDA-Public Use
  Company Number: GB-PFIZER INC-2011035092

PATIENT
  Age: 61 Year
  Sex: Female

DRUGS (9)
  1. PREDNISOLONE [Concomitant]
  2. LERCANIDIPINE [Suspect]
     Dosage: UNK
  3. AMOXICILLIN [Concomitant]
  4. EXEMESTANE [Suspect]
     Indication: BREAST CANCER
     Dosage: 25 MG, UNK
     Dates: start: 20100101
  5. RAMIPRIL [Suspect]
     Dosage: UNK
     Route: 048
  6. ANASTROZOLE [Suspect]
     Indication: BREAST CANCER
     Dosage: 1 MG, UNK
     Route: 048
     Dates: end: 20100101
  7. ATROVENT [Suspect]
     Dosage: UNK
  8. ATORVASTATIN CALCIUM [Suspect]
     Dosage: UNK
  9. BENDROFLUMETHIAZIDE [Suspect]
     Indication: HYPERTENSION
     Dosage: 2.5 MG, UNK
     Route: 048

REACTIONS (1)
  - HYPONATRAEMIA [None]
